FAERS Safety Report 16692978 (Version 1)
Quarter: 2019Q3

REPORT INFORMATION
  Report Type: Spontaneous
  Country: US (occurrence: US)
  Receive Date: 20190812
  Receipt Date: 20190812
  Transmission Date: 20191004
  Serious: Yes (Other)
  Sender: FDA-Public Use
  Company Number: US-AMGEN-USASP2019125978

PATIENT
  Age: 85 Year
  Sex: Female

DRUGS (1)
  1. PROLIA [Suspect]
     Active Substance: DENOSUMAB
     Indication: OSTEOPOROSIS POSTMENOPAUSAL
     Dosage: UNK
     Route: 065

REACTIONS (5)
  - Tooth extraction [Recovering/Resolving]
  - Oral infection [Recovering/Resolving]
  - Dental restoration failure [Unknown]
  - Dental implantation [Recovering/Resolving]
  - Bone graft [Recovering/Resolving]

NARRATIVE: CASE EVENT DATE: 2018
